FAERS Safety Report 5873655-2 (Version None)
Quarter: 2008Q3

REPORT INFORMATION
  Report Type: 
  Country: None (occurrence: None)
  Receive Date: 20080908
  Receipt Date: 20080829
  Transmission Date: 20090109
  Serious: Yes (Death)
  Sender: FDA-Public Use
  Company Number: A0746143A

PATIENT
  Age: 95 Year
  Sex: Female
  Weight: 80 kg

DRUGS (3)
  1. SERETIDE [Suspect]
     Indication: ASTHMA
     Route: 055
     Dates: start: 20071101, end: 20080530
  2. ATENOLOL [Concomitant]
     Dosage: 2TAB TWICE PER DAY
     Dates: start: 19980101, end: 20071101
  3. AMIODARONE HCL [Concomitant]
     Dates: start: 20080201, end: 20080530

REACTIONS (1)
  - DEATH [None]
